APPROVED DRUG PRODUCT: ATRACURIUM BESYLATE
Active Ingredient: ATRACURIUM BESYLATE
Strength: 10MG/ML
Dosage Form/Route: INJECTABLE;INJECTION
Application: A074784 | Product #001
Applicant: TEVA PARENTERAL MEDICINES INC
Approved: Jun 11, 1997 | RLD: No | RS: No | Type: DISCN